FAERS Safety Report 9090929 (Version 1)
Quarter: 2013Q1

REPORT INFORMATION
  Report Type: Spontaneous
  Country: US (occurrence: US)
  Receive Date: 20130201
  Receipt Date: 20130201
  Transmission Date: 20140127
  Serious: No
  Sender: FDA-Public Use
  Company Number: US-ASTRAZENECA-2013SE02263

PATIENT
  Age: 16 Year
  Sex: Female

DRUGS (12)
  1. SEROQUEL [Suspect]
     Indication: MAJOR DEPRESSION
     Route: 048
  2. SEROQUEL [Suspect]
     Indication: AGITATION
     Route: 048
  3. SEROQUEL [Suspect]
     Indication: SLEEP DISORDER
     Route: 048
  4. SEROQUEL [Suspect]
     Indication: MAJOR DEPRESSION
     Route: 048
     Dates: start: 20130104
  5. SEROQUEL [Suspect]
     Indication: AGITATION
     Route: 048
     Dates: start: 20130104
  6. SEROQUEL [Suspect]
     Indication: SLEEP DISORDER
     Route: 048
     Dates: start: 20130104
  7. SEROQUEL [Suspect]
     Indication: MAJOR DEPRESSION
     Route: 048
     Dates: start: 20120107
  8. SEROQUEL [Suspect]
     Indication: AGITATION
     Route: 048
     Dates: start: 20120107
  9. SEROQUEL [Suspect]
     Indication: SLEEP DISORDER
     Route: 048
     Dates: start: 20120107
  10. VITAMIN D [Concomitant]
  11. OMEGA 3 OIL [Concomitant]
  12. ORTHOCYCLEN [Concomitant]

REACTIONS (4)
  - Depression [Recovered/Resolved]
  - Agitation [Recovered/Resolved]
  - Off label use [Unknown]
  - Drug ineffective [Unknown]
